FAERS Safety Report 6233519-1 (Version None)
Quarter: 2009Q2

REPORT INFORMATION
  Report Type: 
  Country: None (occurrence: None)
  Receive Date: 20090617
  Receipt Date: 20090611
  Transmission Date: 20091009
  Serious: Yes (Hospitalization, Other)
  Sender: FDA-Public Use
  Company Number: PHHO2009FR06006

PATIENT
  Sex: Female

DRUGS (1)
  1. RAD 666 RAD+TAB [Suspect]
     Indication: ENDOMETRIAL CANCER METASTATIC
     Dosage: 10 MG / DAY
     Route: 048
     Dates: start: 20080702

REACTIONS (3)
  - LUNG ABSCESS [None]
  - LUNG DISORDER [None]
  - MALIGNANT NEOPLASM PROGRESSION [None]
